FAERS Safety Report 21168381 (Version 2)
Quarter: 2022Q3

REPORT INFORMATION
  Report Type: Report from Study
  Country: US (occurrence: US)
  Receive Date: 20220803
  Receipt Date: 20220808
  Transmission Date: 20221027
  Serious: Yes (Other)
  Sender: FDA-Public Use
  Company Number: US-BEH-2022147722

PATIENT
  Age: 36 Year
  Sex: Female
  Weight: 88.889 kg

DRUGS (3)
  1. HAEGARDA [Suspect]
     Active Substance: HUMAN C1-ESTERASE INHIBITOR
     Indication: Hereditary angioedema
     Dosage: 5500 INTERNATIONAL UNIT, EVERY 3 DAYS
     Route: 058
     Dates: start: 20220623
  2. HAEGARDA [Suspect]
     Active Substance: HUMAN C1-ESTERASE INHIBITOR
     Indication: Prophylaxis
  3. HAEGARDA [Suspect]
     Active Substance: HUMAN C1-ESTERASE INHIBITOR
     Dosage: 5500 INTERNATIONAL UNIT
     Route: 058

REACTIONS (5)
  - Hereditary angioedema [Recovered/Resolved with Sequelae]
  - Infusion site swelling [Recovered/Resolved with Sequelae]
  - Burning sensation [Unknown]
  - No adverse event [Not Recovered/Not Resolved]
  - Product administered at inappropriate site [Not Recovered/Not Resolved]

NARRATIVE: CASE EVENT DATE: 20220623
